FAERS Safety Report 4524756-2 (Version None)
Quarter: 2004Q4

REPORT INFORMATION
  Report Type: 
  Country: None (occurrence: None)
  Receive Date: 20041213
  Receipt Date: 20041130
  Transmission Date: 20050328
  Serious: Yes (Hospitalization)
  Sender: FDA-Public Use
  Company Number: FR-BRISTOL-MYERS SQUIBB COMPANY-12780573

PATIENT
  Age: 79 Year
  Sex: Female

DRUGS (8)
  1. COUMADIN [Suspect]
     Dosage: SUBSTITUTION WITH CALCIPARINE ON 30-SEP-2004
     Route: 048
  2. CALCIPARINE [Suspect]
     Route: 058
  3. TENORMIN [Concomitant]
  4. VASTEN [Concomitant]
  5. ZYLORIC [Concomitant]
  6. RENAGEL [Concomitant]
  7. LASILIX [Concomitant]
  8. TRIATEC [Concomitant]

REACTIONS (4)
  - HAEMATOMA [None]
  - PARATHYROID HAEMORRHAGE [None]
  - PARATHYROID TUMOUR BENIGN [None]
  - SHOCK [None]
